FAERS Safety Report 15814349 (Version 1)
Quarter: 2019Q1

REPORT INFORMATION
  Report Type: Report from Study
  Country: ES (occurrence: ES)
  Receive Date: 20190111
  Receipt Date: 20190111
  Transmission Date: 20190417
  Serious: Yes (Other)
  Sender: FDA-Public Use
  Company Number: ES-BAUSCH-BL-2019-000617

PATIENT
  Age: 3 Year
  Sex: Male

DRUGS (7)
  1. SEPTRIN [Concomitant]
     Active Substance: SULFAMETHOXAZOLE\TRIMETHOPRIM
     Indication: OPPORTUNISTIC INFECTION PROPHYLAXIS
     Dosage: PEDIATRIC 8 MG/40 MG/ML,1 BOTTLE OF 100 ML
     Route: 048
     Dates: start: 20180110
  2. VINCRISTINA SULFATO [Concomitant]
     Active Substance: VINCRISTINE SULFATE
     Indication: ACUTE LYMPHOCYTIC LEUKAEMIA
     Route: 042
     Dates: start: 20180418
  3. ONCASPAR [Suspect]
     Active Substance: PEGASPARGASE
     Indication: ACUTE LYMPHOCYTIC LEUKAEMIA
     Dosage: 750U / ML SOLUTION FOR INJECTION AND INFUSION, 1 VIAL OF 5 ML
     Route: 030
     Dates: start: 20180418, end: 20180418
  4. DOXORUBICINA [Concomitant]
     Active Substance: DOXORUBICIN HYDROCHLORIDE
     Indication: ACUTE LYMPHOCYTIC LEUKAEMIA
     Route: 042
     Dates: start: 20180418
  5. DEXAMETASONA [Suspect]
     Active Substance: DEXAMETHASONE
     Indication: ACUTE LYMPHOCYTIC LEUKAEMIA
     Route: 048
     Dates: start: 20180418
  6. ENOXAPARINA SODICA [Concomitant]
     Active Substance: ENOXAPARIN SODIUM
     Indication: THROMBOSIS PROPHYLAXIS
     Route: 058
     Dates: start: 20180418
  7. ZOVIRAX [Concomitant]
     Active Substance: ACYCLOVIR
     Indication: OPPORTUNISTIC INFECTION PROPHYLAXIS
     Dosage: 400 MG / 5 ML, 1 BOTTLE OF 200 ML
     Route: 048
     Dates: start: 20171107

REACTIONS (2)
  - Hypercholesterolaemia [Recovering/Resolving]
  - Hypertriglyceridaemia [Recovering/Resolving]

NARRATIVE: CASE EVENT DATE: 20180425
